FAERS Safety Report 18551385 (Version 1)
Quarter: 2020Q4

REPORT INFORMATION
  Report Type: Spontaneous
  Country: JP (occurrence: JP)
  Receive Date: 20201126
  Receipt Date: 20201126
  Transmission Date: 20210114
  Serious: Yes (Death)
  Sender: FDA-Public Use
  Company Number: NVSJ2020JP010096

PATIENT
  Age: 71 Year
  Sex: Female

DRUGS (12)
  1. NEORAL [Suspect]
     Active Substance: CYCLOSPORINE
     Indication: APLASTIC ANAEMIA
     Dosage: 100 MG
     Route: 048
     Dates: start: 20181004, end: 20181010
  2. REVOLADE [Concomitant]
     Active Substance: ELTROMBOPAG
     Indication: APLASTIC ANAEMIA
     Dosage: 25 MG
     Route: 048
     Dates: start: 20190830, end: 20191128
  3. REVOLADE [Concomitant]
     Active Substance: ELTROMBOPAG
     Dosage: 25 MG
     Route: 048
     Dates: start: 20200110, end: 20200925
  4. PRIMOBOLAN [Concomitant]
     Active Substance: METHENOLONE
     Indication: APLASTIC ANAEMIA
     Dosage: 10 MG
     Route: 048
     Dates: start: 20180911, end: 20180919
  5. NEORAL [Suspect]
     Active Substance: CYCLOSPORINE
     Dosage: 250 MG
     Route: 048
     Dates: start: 20181115, end: 20190620
  6. NEORAL [Suspect]
     Active Substance: CYCLOSPORINE
     Dosage: 200 MG
     Route: 048
     Dates: start: 20181011, end: 20181114
  7. AMLODIPINE [Concomitant]
     Active Substance: AMLODIPINE BESYLATE
     Indication: PRODUCT USED FOR UNKNOWN INDICATION
     Dosage: 2.5 MG
     Route: 048
     Dates: start: 201601
  8. PRIMOBOLAN [Concomitant]
     Active Substance: METHENOLONE
     Dosage: 20 MG
     Route: 048
     Dates: start: 20180920, end: 20181003
  9. PRIMOBOLAN [Concomitant]
     Active Substance: METHENOLONE
     Dosage: 20 MG
     Route: 048
     Dates: start: 20190621, end: 20190921
  10. NEORAL [Suspect]
     Active Substance: CYCLOSPORINE
     Dosage: 200 MG
     Route: 048
     Dates: start: 20190621, end: 20191031
  11. NEORAL [Suspect]
     Active Substance: CYCLOSPORINE
     Dosage: UNK
     Route: 048
  12. REVOLADE [Concomitant]
     Active Substance: ELTROMBOPAG
     Dosage: 37.5 MG
     Route: 048
     Dates: start: 20191129, end: 20200109

REACTIONS (3)
  - Product use in unapproved indication [Unknown]
  - Death [Fatal]
  - Dizziness [Not Recovered/Not Resolved]

NARRATIVE: CASE EVENT DATE: 20200105
